FAERS Safety Report 12998669 (Version 5)
Quarter: 2017Q2

REPORT INFORMATION
  Report Type: Spontaneous
  Country: SA (occurrence: SA)
  Receive Date: 20161205
  Receipt Date: 20170428
  Transmission Date: 20170830
  Serious: Yes (Hospitalization)
  Sender: FDA-Public Use
  Company Number: SA-SA-2016SA216689

PATIENT
  Age: 31 Year
  Sex: Female

DRUGS (2)
  1. LEMTRADA [Suspect]
     Active Substance: ALEMTUZUMAB
     Indication: RELAPSING-REMITTING MULTIPLE SCLEROSIS
     Dosage: DOSAGE: 5 DOSES
     Route: 041
     Dates: start: 201610, end: 20161010
  2. PREDNISOLONE. [Concomitant]
     Active Substance: PREDNISOLONE
     Route: 065

REACTIONS (15)
  - Pyrexia [Recovering/Resolving]
  - Mucormycosis [Unknown]
  - Leukopenia [Recovering/Resolving]
  - Mean cell volume increased [Unknown]
  - Red cell distribution width increased [Unknown]
  - Lip infection [Recovered/Resolved]
  - Haemoglobin decreased [Unknown]
  - Haematocrit decreased [Unknown]
  - Red blood cell count decreased [Unknown]
  - Neutropenia [Recovering/Resolving]
  - Skin lesion [Recovering/Resolving]
  - Mean platelet volume increased [Unknown]
  - Thrombocytopenia [Not Recovered/Not Resolved]
  - Platelet count decreased [Recovered/Resolved]
  - Mean cell haemoglobin concentration decreased [Unknown]

NARRATIVE: CASE EVENT DATE: 2016
